FAERS Safety Report 19873523 (Version 2)
Quarter: 2021Q4

REPORT INFORMATION
  Report Type: Spontaneous
  Country: CN (occurrence: CN)
  Receive Date: 20210923
  Receipt Date: 20211008
  Transmission Date: 20220304
  Serious: Yes (Hospitalization)
  Sender: FDA-Public Use
  Company Number: CN-ELI_LILLY_AND_COMPANY-CN202109006014

PATIENT
  Age: 70 Year
  Sex: Female
  Weight: 82 kg

DRUGS (3)
  1. HUMALOG MIX75/25 [Suspect]
     Active Substance: INSULIN LISPRO
     Indication: Diabetes mellitus
     Dosage: 8 U, BID MORNING AND NIGHT
     Route: 058
     Dates: start: 2012
  2. HUMALOG MIX75/25 [Suspect]
     Active Substance: INSULIN LISPRO
     Dosage: 10-12 UNITS AT NOON
     Route: 058
     Dates: start: 2012
  3. KA BO PING [Concomitant]
     Indication: Product used for unknown indication

REACTIONS (5)
  - Coronary artery disease [Recovering/Resolving]
  - Peripheral artery occlusion [Recovering/Resolving]
  - Renal disorder [Unknown]
  - Blood glucose increased [Unknown]
  - Product dose omission issue [Unknown]
